FAERS Safety Report 6662398-3 (Version None)
Quarter: 2010Q1

REPORT INFORMATION
  Report Type: 
  Country: None (occurrence: None)
  Receive Date: 20100331
  Receipt Date: 20100319
  Transmission Date: 20100710
  Serious: No
  Sender: FDA-Public Use
  Company Number: DK-ELI_LILLY_AND_COMPANY-DK201003005797

PATIENT
  Sex: Male
  Weight: 69 kg

DRUGS (1)
  1. ZYPREXA [Suspect]
     Indication: SCHIZOTYPAL PERSONALITY DISORDER
     Dosage: 30 MG, DAILY (1/D)
     Route: 048
     Dates: start: 20030101

REACTIONS (2)
  - OVERDOSE [None]
  - THROMBOCYTOPENIA [None]
